FAERS Safety Report 8163087-9 (Version None)
Quarter: 2012Q1

REPORT INFORMATION
  Report Type: 
  Country: None (occurrence: None)
  Receive Date: 20120224
  Receipt Date: 20120220
  Transmission Date: 20120608
  Serious: Yes (Other)
  Sender: FDA-Public Use
  Company Number: GB-GLAXOSMITHKLINE-B0777597A

PATIENT
  Sex: Female

DRUGS (4)
  1. SIMVASTATIN [Concomitant]
     Dosage: 40MG PER DAY
  2. POTIGA [Suspect]
     Indication: EPILEPSY
     Route: 048
     Dates: start: 20120101, end: 20120218
  3. PHENOBARBITAL TAB [Concomitant]
     Dosage: 330MG AT NIGHT
  4. ZOPICLONE [Concomitant]
     Dosage: 15MG AS REQUIRED

REACTIONS (12)
  - PAIN IN EXTREMITY [None]
  - HEADACHE [None]
  - BLISTER [None]
  - OEDEMA PERIPHERAL [None]
  - SKIN DISCOLOURATION [None]
  - CONVULSION [None]
  - DRUG ERUPTION [None]
  - THERMAL BURN [None]
  - AMNESIA [None]
  - ERYTHEMA [None]
  - SKIN DISORDER [None]
  - SCAR [None]
